FAERS Safety Report 9040225 (Version 1)
Quarter: 2013Q1

REPORT INFORMATION
  Report Type: Spontaneous
  Country: US (occurrence: US)
  Receive Date: 20130129
  Receipt Date: 20130129
  Transmission Date: 20140127
  Serious: No
  Sender: FDA-Public Use
  Company Number: US-ABBOTT-11P-163-0848609-00

PATIENT
  Age: 60 None
  Sex: Female
  Weight: 81.72 kg

DRUGS (14)
  1. HUMIRA 40 MG/0.8 ML PEN [Suspect]
     Indication: PSORIATIC ARTHROPATHY
     Dates: start: 2001, end: 2010
  2. HUMIRA 40 MG/0.8 ML PEN [Suspect]
     Dates: start: 201104
  3. ENBREL [Suspect]
     Indication: PSORIATIC ARTHROPATHY
     Dates: start: 201008, end: 201010
  4. ADVIL [Suspect]
     Indication: FIBROMYALGIA
  5. ADVIL [Suspect]
     Indication: MUSCULOSKELETAL PAIN
  6. ADVIL [Suspect]
     Indication: NECK PAIN
  7. ADVIL [Suspect]
     Indication: BACK PAIN
  8. SYNTHROID [Concomitant]
     Indication: HYPOTHYROIDISM
  9. CLONAZEPAM [Concomitant]
     Indication: ANXIETY
  10. CLONAZEPAM [Concomitant]
     Indication: RESTLESS LEGS SYNDROME
  11. CITALOPRAM [Concomitant]
     Indication: FIBROMYALGIA
  12. ENBREL [Concomitant]
     Indication: PRODUCT USED FOR UNKNOWN INDICATION
  13. CALCIUM WITH VITAMIN D [Concomitant]
     Indication: PRODUCT USED FOR UNKNOWN INDICATION
  14. ACTONEL [Concomitant]
     Indication: OSTEOPOROSIS

REACTIONS (20)
  - Fungal infection [Recovered/Resolved]
  - Injection site haemorrhage [Recovered/Resolved]
  - Injection site nodule [Recovered/Resolved]
  - Injection site bruising [Recovering/Resolving]
  - Abdominal pain upper [Unknown]
  - Musculoskeletal pain [Not Recovered/Not Resolved]
  - Malaise [Not Recovered/Not Resolved]
  - Decreased appetite [Not Recovered/Not Resolved]
  - Blood urine present [Not Recovered/Not Resolved]
  - Fibromyalgia [Not Recovered/Not Resolved]
  - Back pain [Not Recovered/Not Resolved]
  - Musculoskeletal pain [Not Recovered/Not Resolved]
  - Neck pain [Not Recovered/Not Resolved]
  - Pyrexia [Recovered/Resolved]
  - Flushing [Recovered/Resolved]
  - Therapy change [Unknown]
  - Injection site haemorrhage [Recovered/Resolved]
  - Blood cholesterol increased [Unknown]
  - Papule [Unknown]
  - Onychomycosis [Unknown]
